FAERS Safety Report 13948670 (Version 1)
Quarter: 2017Q3

REPORT INFORMATION
  Report Type: Spontaneous
  Country: US (occurrence: None)
  Receive Date: 20170907
  Receipt Date: 20170907
  Transmission Date: 20171128
  Serious: Yes (Disabling)
  Sender: FDA-Public Use
  Company Number: None

PATIENT
  Age: 30 Year
  Sex: Male

DRUGS (2)
  1. OLD SPICE FRESH HIGH ENDURANCE [Suspect]
     Active Substance: ALUMINUM ZIRCONIUM TRICHLOROHYDREX GLY
     Dosage: 2-3 SWIPES UNKNOWN TOPICAL
     Route: 061
     Dates: end: 2013
  2. OLD SPICE BODY SPRAY DEODORANT [Suspect]
     Active Substance: COSMETICS

REACTIONS (10)
  - Inflammation [None]
  - Axillary pain [None]
  - Dermatitis [None]
  - Chemical burn [None]
  - Pain [None]
  - Cyst [None]
  - Lymphocele [None]
  - Skin burning sensation [None]
  - Sepsis [None]
  - Purulent discharge [None]

NARRATIVE: CASE EVENT DATE: 2013
